FAERS Safety Report 8321664 (Version 3)
Quarter: 2012Q4

REPORT INFORMATION
  Report Type: 
  Country: FR (occurrence: FR)
  Receive Date: 20120104
  Receipt Date: 20121026
  Transmission Date: 20130627
  Serious: Yes (Hospitalization)
  Sender: FDA-Public Use
  Company Number: PHHO2011FR021809

PATIENT
  Age: 47 Year
  Sex: Female
  Weight: 60 kg

DRUGS (5)
  1. FTY [Suspect]
     Indication: RELAPSING-REMITTING MULTIPLE SCLEROSIS
     Dosage: 0.5 mg, QD
     Route: 048
     Dates: start: 20111130, end: 20111229
  2. FTY [Suspect]
     Dosage: 0.5 mg, UNK
     Route: 048
     Dates: start: 20120102
  3. NISIS [Concomitant]
     Indication: HYPERTENSION
     Dosage: 20 mg, QD
     Route: 050
  4. LEVOTHYROX [Concomitant]
     Indication: HYPOTHYROIDISM
     Dosage: 100 mg, QD
     Route: 048
     Dates: end: 20111229
  5. LEVOTHYROX [Concomitant]
     Dosage: 1125 mg, QD
     Route: 048
     Dates: start: 20120104

REACTIONS (3)
  - Loss of consciousness [Recovered/Resolved]
  - Tongue biting [Recovered/Resolved]
  - Urinary incontinence [Recovered/Resolved]
